FAERS Safety Report 25269639 (Version 1)
Quarter: 2025Q2

REPORT INFORMATION
  Report Type: Report from Study
  Country: US (occurrence: US)
  Receive Date: 20250505
  Receipt Date: 20250505
  Transmission Date: 20250717
  Serious: Yes (Other)
  Sender: TAKEDA
  Company Number: US-TAKEDA-2025TUS030485

PATIENT
  Sex: Female

DRUGS (3)
  1. GLASSIA [Suspect]
     Active Substance: .ALPHA.1-PROTEINASE INHIBITOR HUMAN
     Indication: Alpha-1 antitrypsin deficiency
     Dosage: UNK UNK, 1/WEEK
  2. GLASSIA [Suspect]
     Active Substance: .ALPHA.1-PROTEINASE INHIBITOR HUMAN
  3. BENADRYL [Suspect]
     Active Substance: DIPHENHYDRAMINE HYDROCHLORIDE
     Indication: Product used for unknown indication

REACTIONS (13)
  - Loss of consciousness [Unknown]
  - Diabetes mellitus [Unknown]
  - Arthralgia [Unknown]
  - Pain [Unknown]
  - Urinary tract infection [Unknown]
  - Bladder pain [Unknown]
  - Dyspnoea [Recovering/Resolving]
  - Illness [Not Recovered/Not Resolved]
  - Concussion [Unknown]
  - Foot fracture [Unknown]
  - Blood pressure increased [Unknown]
  - Nausea [Unknown]
  - Headache [Not Recovered/Not Resolved]
